FAERS Safety Report 8782042 (Version 2)
Quarter: 2012Q4

REPORT INFORMATION
  Report Type: 
  Country: US (occurrence: US)
  Receive Date: 20120913
  Receipt Date: 20121016
  Transmission Date: 20130627
  Serious: No
  Sender: FDA-Public Use
  Company Number: US-VERTEX PHARMACEUTICAL INC.-2012-020302

PATIENT
  Sex: Male

DRUGS (3)
  1. INCIVEK [Suspect]
     Indication: HEPATITIS C
     Dosage: UNK
     Route: 048
     Dates: start: 20111120
  2. RIBAVIRIN [Suspect]
     Indication: HEPATITIS C
     Dosage: UNK
     Dates: start: 20111120, end: 20120728
  3. PEGASYS [Suspect]
     Indication: HEPATITIS C
     Dosage: UNK
     Dates: start: 20111120, end: 20120728

REACTIONS (16)
  - Depressed mood [Unknown]
  - Dyspnoea [Unknown]
  - Dizziness [Unknown]
  - Emotional distress [Unknown]
  - Personality change [Unknown]
  - Limb injury [Unknown]
  - Dry skin [Unknown]
  - Alopecia [Unknown]
  - Contusion [Unknown]
  - Feeling cold [Unknown]
  - Malaise [Unknown]
  - Asthenia [Unknown]
  - Fatigue [Unknown]
  - Pruritus [None]
  - Haematocrit decreased [Unknown]
  - Haemoglobin decreased [Unknown]
